FAERS Safety Report 9417247 (Version 1)
Quarter: 2013Q3

REPORT INFORMATION
  Report Type: Spontaneous
  Country: US (occurrence: None)
  Receive Date: 20130722
  Receipt Date: 20130722
  Transmission Date: 20140515
  Serious: Yes (Death, Hospitalization)
  Sender: FDA-Public Use
  Company Number: None

PATIENT
  Age: 69 Year
  Sex: Female
  Weight: 45.81 kg

DRUGS (11)
  1. ERLOTINIB [Suspect]
     Indication: NON-SMALL CELL LUNG CANCER
     Dates: start: 20120328, end: 20130626
  2. LEVETIRACETAM (KEPPRA) [Concomitant]
  3. MOUTH MOISTURIZER (SALIVA SUBSTITUTE) [Concomitant]
  4. ARTIFICIAL TEARS [Concomitant]
  5. CHAPSTICK LIP BALM [Concomitant]
  6. GLYCOPYRROLATE [Concomitant]
  7. HYDROMORPHONE HCL (DILAUDID) [Concomitant]
  8. BISACODYL [Concomitant]
  9. ACETAMINOPHEN [Concomitant]
  10. HALOPERIDOL (HALDOL) [Concomitant]
  11. LORAZEPAM [Concomitant]

REACTIONS (3)
  - Metastases to meninges [None]
  - Hypophagia [None]
  - Unresponsive to stimuli [None]
